FAERS Safety Report 13721337 (Version 1)
Quarter: 2017Q3

REPORT INFORMATION
  Report Type: Spontaneous
  Country: NZ (occurrence: NZ)
  Receive Date: 20170706
  Receipt Date: 20170706
  Transmission Date: 20171127
  Serious: Yes (Other)
  Sender: FDA-Public Use
  Company Number: PHHY2017NZ094347

PATIENT
  Age: 35 Year
  Sex: Female

DRUGS (3)
  1. IMATINIB [Suspect]
     Active Substance: IMATINIB
     Indication: PRODUCT USED FOR UNKNOWN INDICATION
     Route: 065
  2. CLADRIBINE. [Concomitant]
     Active Substance: CLADRIBINE
     Dosage: UNK
     Route: 065
     Dates: start: 201706
  3. CLADRIBINE. [Concomitant]
     Active Substance: CLADRIBINE
     Indication: PRODUCT USED FOR UNKNOWN INDICATION

REACTIONS (29)
  - Haemoglobin decreased [Not Recovered/Not Resolved]
  - Gamma-glutamyltransferase increased [Not Recovered/Not Resolved]
  - Drug ineffective [Unknown]
  - White blood cell count decreased [Unknown]
  - C-reactive protein increased [Recovered/Resolved]
  - Myalgia [Unknown]
  - Blood alkaline phosphatase increased [Not Recovered/Not Resolved]
  - Weight decreased [Unknown]
  - Malnutrition [Unknown]
  - Red cell distribution width increased [Not Recovered/Not Resolved]
  - Electrocardiogram QT prolonged [Unknown]
  - Red blood cell count decreased [Not Recovered/Not Resolved]
  - Haematocrit decreased [Not Recovered/Not Resolved]
  - White blood cell count decreased [Recovered/Resolved]
  - Malaise [Unknown]
  - Urticaria [Unknown]
  - Diarrhoea [Recovering/Resolving]
  - Globulins increased [Not Recovered/Not Resolved]
  - Rash [Recovering/Resolving]
  - Hepatic lesion [Recovering/Resolving]
  - Neutrophil count increased [Recovered/Resolved]
  - Sinus tachycardia [Unknown]
  - Arthralgia [Unknown]
  - Thrombocytosis [Unknown]
  - Platelet count increased [Recovered/Resolved]
  - Pyrexia [Unknown]
  - Blood sodium decreased [Not Recovered/Not Resolved]
  - Blood albumin decreased [Not Recovered/Not Resolved]
  - Alanine aminotransferase increased [Not Recovered/Not Resolved]

NARRATIVE: CASE EVENT DATE: 20170528
